FAERS Safety Report 7081144-5 (Version None)
Quarter: 2010Q4

REPORT INFORMATION
  Report Type: 
  Country: None (occurrence: None)
  Receive Date: 20101103
  Receipt Date: 20101025
  Transmission Date: 20110411
  Serious: Yes (Other)
  Sender: FDA-Public Use
  Company Number: B0637502A

PATIENT
  Sex: Female

DRUGS (4)
  1. KEPPRA [Suspect]
     Indication: EPILEPSY
     Dosage: 1500UNIT TWICE PER DAY
     Route: 048
     Dates: start: 20080801, end: 20090925
  2. LAMOTRIGINE [Suspect]
     Indication: EPILEPSY
     Dosage: 75UNIT TWICE PER DAY
     Route: 048
     Dates: start: 20080801, end: 20090915
  3. TEGRETOL [Suspect]
     Indication: EPILEPSY
     Dosage: 400UNIT TWICE PER DAY
     Route: 048
     Dates: start: 20080801, end: 20090930
  4. ORAL CONTRACEPTIVE (UNKNOWN) [Concomitant]
     Indication: CONTRACEPTION
     Route: 048

REACTIONS (5)
  - CAESAREAN SECTION [None]
  - COMPLICATION OF PREGNANCY [None]
  - DRUG EXPOSURE DURING PREGNANCY [None]
  - PREGNANCY ON ORAL CONTRACEPTIVE [None]
  - UNINTENDED PREGNANCY [None]
